FAERS Safety Report 12007944 (Version 1)
Quarter: 2016Q1

REPORT INFORMATION
  Report Type: Spontaneous
  Country: FR (occurrence: FR)
  Receive Date: 20160205
  Receipt Date: 20160205
  Transmission Date: 20160526
  Serious: Yes (Death)
  Sender: FDA-Public Use
  Company Number: FR-ROCHE-1706602

PATIENT
  Age: 65 Year
  Sex: Female

DRUGS (6)
  1. AVASTIN [Suspect]
     Active Substance: BEVACIZUMAB
     Indication: COLORECTAL ADENOCARCINOMA
     Dosage: LAST DOSE PRIOR TO SAE: 04/JUL/2014
     Route: 041
     Dates: end: 20140704
  2. PREVISCAN (FRANCE) [Suspect]
     Active Substance: FLUINDIONE
     Indication: DEEP VEIN THROMBOSIS
     Route: 048
     Dates: end: 20140723
  3. FLUOROURACIL. [Concomitant]
     Active Substance: FLUOROURACIL
  4. XELODA [Suspect]
     Active Substance: CAPECITABINE
     Indication: COLORECTAL ADENOCARCINOMA
     Dosage: LAST DOSE PRIOR TO SAE: 04/JUL/2014
     Route: 048
     Dates: end: 20140704
  5. IRINOTECAN [Concomitant]
     Active Substance: IRINOTECAN
  6. FOLINIC ACID [Concomitant]
     Active Substance: LEUCOVORIN

REACTIONS (1)
  - Cerebral haematoma [Fatal]

NARRATIVE: CASE EVENT DATE: 20140723
